FAERS Safety Report 9405386 (Version 1)
Quarter: 2013Q3

REPORT INFORMATION
  Report Type: Spontaneous
  Country: GB (occurrence: None)
  Receive Date: 20130715
  Receipt Date: 20130715
  Transmission Date: 20140515
  Serious: Yes (Other)
  Sender: FDA-Public Use
  Company Number: FK201302461

PATIENT
  Age: 64 Year
  Sex: Female

DRUGS (3)
  1. FUROSEMIDE (MANUFACTURER UNKNOWN) (FUROSEMIDE) (FUROSEMIDE) [Suspect]
     Indication: FLUID RETENTION
     Route: 048
     Dates: start: 20130604, end: 20130611
  2. INDAPAMIDE (INDAPAMIDE) [Concomitant]
  3. WARFARIN (WARFARIN) [Concomitant]

REACTIONS (1)
  - Diverticulitis [None]
